FAERS Safety Report 23752316 (Version 1)
Quarter: 2024Q2

REPORT INFORMATION
  Report Type: Spontaneous
  Country: US (occurrence: None)
  Receive Date: 20240417
  Receipt Date: 20240417
  Transmission Date: 20240716
  Serious: Yes (Hospitalization)
  Sender: FDA-Public Use
  Company Number: None

PATIENT
  Age: 70 Year
  Sex: Female
  Weight: 95 kg

DRUGS (3)
  1. DARATUMUMAB [Suspect]
     Active Substance: DARATUMUMAB
     Dates: end: 20240401
  2. DEXAMETHASONE [Suspect]
     Active Substance: DEXAMETHASONE
     Dates: end: 20240408
  3. LENALIDOMIDE [Suspect]
     Active Substance: LENALIDOMIDE
     Dates: end: 20240411

REACTIONS (8)
  - Dyspnoea [None]
  - Pyrexia [None]
  - Oedema peripheral [None]
  - Atrial fibrillation [None]
  - Respirovirus test positive [None]
  - Goitre [None]
  - Tracheal deviation [None]
  - Lymphadenopathy [None]

NARRATIVE: CASE EVENT DATE: 20240411
